FAERS Safety Report 18324235 (Version 2)
Quarter: 2020Q4

REPORT INFORMATION
  Report Type: Report from Study
  Country: US (occurrence: US)
  Receive Date: 20200928
  Receipt Date: 20201016
  Transmission Date: 20210113
  Serious: No
  Sender: FDA-Public Use
  Company Number: NVSC2020US262621

PATIENT
  Age: 78 Year
  Sex: Male

DRUGS (1)
  1. ENTRESTO [Suspect]
     Active Substance: SACUBITRIL\VALSARTAN
     Indication: PRODUCT USED FOR UNKNOWN INDICATION
     Dosage: TWICE A DAY
     Route: 048
     Dates: start: 202007

REACTIONS (3)
  - Product dose omission issue [Unknown]
  - Muscle spasms [Not Recovered/Not Resolved]
  - Hypotension [Unknown]

NARRATIVE: CASE EVENT DATE: 202007
